FAERS Safety Report 8487453-7 (Version None)
Quarter: 2012Q3

REPORT INFORMATION
  Report Type: 
  Country: None (occurrence: None)
  Receive Date: 20120705
  Receipt Date: 20120625
  Transmission Date: 20120928
  Serious: Yes (Disabling)
  Sender: FDA-Public Use
  Company Number: NL-ACCORD-013978

PATIENT
  Sex: Female

DRUGS (1)
  1. TOPIRAMATE [Suspect]

REACTIONS (4)
  - DYSPHEMIA [None]
  - HYPERACUSIS [None]
  - COORDINATION ABNORMAL [None]
  - TREMOR [None]
